FAERS Safety Report 9625895 (Version 2)
Quarter: 2013Q4

REPORT INFORMATION
  Report Type: Report from Study
  Country: US (occurrence: US)
  Receive Date: 20131016
  Receipt Date: 20131028
  Transmission Date: 20140711
  Serious: Yes (Other)
  Sender: FDA-Public Use
  Company Number: US-SA-2013SA101227

PATIENT
  Age: 88 Year
  Sex: Female
  Weight: 54.43 kg

DRUGS (7)
  1. AUBAGIO [Suspect]
     Indication: MULTIPLE SCLEROSIS
     Route: 048
     Dates: start: 20130702, end: 20131005
  2. LISINOPRIL [Concomitant]
     Indication: HYPERTENSION
     Dates: start: 20131007, end: 20131009
  3. EVISTA [Concomitant]
  4. TRIAMTERENE [Concomitant]
     Indication: HYPERTENSION
     Dates: start: 20101001
  5. HYDROCHLOROTHIAZIDE [Concomitant]
  6. SIMVASTATIN [Concomitant]
  7. AMLODIPINE BESILATE [Concomitant]

REACTIONS (5)
  - Retinal dystrophy [Not Recovered/Not Resolved]
  - Visual acuity reduced [Not Recovered/Not Resolved]
  - Multiple sclerosis relapse [Not Recovered/Not Resolved]
  - Muscle spasms [Recovered/Resolved]
  - Diarrhoea [Recovered/Resolved]
